FAERS Safety Report 9475478 (Version 2)
Quarter: 2013Q3

REPORT INFORMATION
  Report Type: Spontaneous
  Country: US (occurrence: US)
  Receive Date: 20130826
  Receipt Date: 20130826
  Transmission Date: 20140515
  Serious: No
  Sender: FDA-Public Use
  Company Number: US-009507513-0602USA00660

PATIENT
  Sex: Female

DRUGS (8)
  1. COSOPT [Suspect]
     Indication: GLAUCOMA
     Dosage: 1 DROP, BID
     Route: 047
  2. COSOPT [Suspect]
     Dosage: 1 DROP, BID
     Route: 047
  3. PILOCARPINE [Suspect]
  4. LUMIGAN [Concomitant]
  5. METFORMIN [Concomitant]
  6. ATENOLOL [Concomitant]
  7. DYAZIDE [Concomitant]
  8. ALPHAGAN [Concomitant]

REACTIONS (4)
  - Eye irritation [Not Recovered/Not Resolved]
  - Eye pruritus [Not Recovered/Not Resolved]
  - Vision blurred [Not Recovered/Not Resolved]
  - Eye irritation [Not Recovered/Not Resolved]
